FAERS Safety Report 8960563 (Version 1)
Quarter: 2012Q4

REPORT INFORMATION
  Report Type: Spontaneous
  Country: US (occurrence: None)
  Receive Date: 20121203
  Receipt Date: 20121203
  Transmission Date: 20130627
  Serious: Yes (Hospitalization)
  Sender: FDA-Public Use
  Company Number: 1503897

PATIENT
  Sex: Female

DRUGS (1)
  1. EPINEPHRINE [Suspect]
     Dates: start: 20121113

REACTIONS (4)
  - Chest pain [None]
  - Dyspnoea [None]
  - Product quality issue [None]
  - Product physical issue [None]
